FAERS Safety Report 4680935-5 (Version None)
Quarter: 2005Q2

REPORT INFORMATION
  Report Type: 
  Country: None (occurrence: None)
  Receive Date: 20050603
  Receipt Date: 20050526
  Transmission Date: 20051028
  Serious: Yes (Other)
  Sender: FDA-Public Use
  Company Number: PHEH2005US06144

PATIENT
  Sex: 0

DRUGS (2)
  1. DIOVAN [Suspect]
     Dosage: 160 MG, UNK
     Route: 048
  2. LIPITOR [Concomitant]

REACTIONS (2)
  - ANTIDIURETIC HORMONE ABNORMALITY [None]
  - HYPONATRAEMIA [None]
